FAERS Safety Report 17896491 (Version 1)
Quarter: 2020Q2

REPORT INFORMATION
  Report Type: Spontaneous
  Country: US (occurrence: US)
  Receive Date: 20200615
  Receipt Date: 20200615
  Transmission Date: 20200714
  Serious: No
  Sender: FDA-Public Use
  Company Number: US-ELITE LABORATORIES INC.-2020ELT00024

PATIENT
  Sex: Female

DRUGS (1)
  1. DEXTROAMPHET SACCHARAT, AMPHET ASPARTATE, DEXTROAMPHET SULFATE AND AMPHET SULFAT [Suspect]
     Active Substance: AMPHETAMINE ASPARTATE\AMPHETAMINE SULFATE\DEXTROAMPHETAMINE SACCHARATE\DEXTROAMPHETAMINE SULFATE

REACTIONS (9)
  - Disturbance in attention [Unknown]
  - Product substitution issue [Unknown]
  - Migraine [Unknown]
  - Anxiety [Unknown]
  - Headache [Unknown]
  - Aphasia [Unknown]
  - Irritability [Unknown]
  - Nightmare [Unknown]
  - Therapeutic response decreased [Unknown]
